FAERS Safety Report 7940048-3 (Version None)
Quarter: 2011Q4

REPORT INFORMATION
  Report Type: 
  Country: None (occurrence: None)
  Receive Date: 20111125
  Receipt Date: 20111116
  Transmission Date: 20120403
  Serious: Yes (Other)
  Sender: FDA-Public Use
  Company Number: RS-BAYER-2011-111136

PATIENT
  Sex: Female

DRUGS (2)
  1. MIRENA [Suspect]
     Indication: UTERINE LEIOMYOMA
  2. MIRENA [Suspect]
     Indication: VAGINAL HAEMORRHAGE
     Dosage: 20 ?G, CONT
     Route: 015
     Dates: start: 20100401, end: 20110801

REACTIONS (3)
  - VAGINAL HAEMORRHAGE [None]
  - ENDOMETRIAL HYPERTROPHY [None]
  - ADENOSQUAMOUS CELL CARCINOMA [None]
